FAERS Safety Report 17515305 (Version 1)
Quarter: 2020Q1

REPORT INFORMATION
  Report Type: Spontaneous
  Country: FR (occurrence: FR)
  Receive Date: 20200309
  Receipt Date: 20200309
  Transmission Date: 20200409
  Serious: Yes (Hospitalization)
  Sender: FDA-Public Use
  Company Number: FR-TEVA-2020-FR-1195358

PATIENT
  Age: 61 Year
  Sex: Female
  Weight: 103 kg

DRUGS (7)
  1. JANUVIA [Suspect]
     Active Substance: SITAGLIPTIN PHOSPHATE
     Indication: TYPE 2 DIABETES MELLITUS
     Dosage: 50 MG
     Route: 048
     Dates: start: 201905, end: 20191224
  2. STAGID 700 MG, COMPRIM? S?CABLE [Suspect]
     Active Substance: METFORMIN PAMOATE
     Indication: TYPE 2 DIABETES MELLITUS
     Dosage: 2100 MG
     Route: 048
     Dates: start: 2015, end: 20191223
  3. LAROXYL [Concomitant]
     Active Substance: AMITRIPTYLINE HYDROCHLORIDE
  4. ALPRAZOLAM. [Concomitant]
     Active Substance: ALPRAZOLAM
  5. RABEPRAZOLE SODIQUE [Suspect]
     Active Substance: RABEPRAZOLE SODIUM
     Indication: PRODUCT USED FOR UNKNOWN INDICATION
     Dosage: 10 MG
     Route: 048
     Dates: start: 2016, end: 20200121
  6. ATORVASTATINE CALCIQUE TRIHYDRAT?E [Suspect]
     Active Substance: ATORVASTATIN
     Indication: DYSLIPIDAEMIA
     Dosage: 10 MG
     Route: 048
     Dates: start: 2015, end: 20200120
  7. DIOSMINE [Concomitant]
     Active Substance: DIOSMIN

REACTIONS (1)
  - Tubulointerstitial nephritis and uveitis syndrome [Recovering/Resolving]

NARRATIVE: CASE EVENT DATE: 201911
